FAERS Safety Report 23654553 (Version 1)
Quarter: 2024Q1

REPORT INFORMATION
  Report Type: Spontaneous
  Country: US (occurrence: None)
  Receive Date: 20240319
  Receipt Date: 20240319
  Transmission Date: 20240409
  Serious: No
  Sender: FDA-Public Use
  Company Number: None

PATIENT
  Age: 36 Year
  Sex: Female
  Weight: 72 kg

DRUGS (2)
  1. ABILIFY [Suspect]
     Active Substance: ARIPIPRAZOLE
     Indication: Drug therapy
     Dosage: OTHER FREQUENCY : 30 DAY INJECTION;?
     Route: 030
     Dates: start: 20240312, end: 20240312
  2. Flintstones with iron [Concomitant]

REACTIONS (4)
  - Movement disorder [None]
  - Sleep disorder [None]
  - Agitation [None]
  - Restlessness [None]

NARRATIVE: CASE EVENT DATE: 20240314
